FAERS Safety Report 14243619 (Version 4)
Quarter: 2018Q1

REPORT INFORMATION
  Report Type: Spontaneous
  Country: CA (occurrence: CA)
  Receive Date: 20171201
  Receipt Date: 20180109
  Transmission Date: 20180508
  Serious: Yes (Other)
  Sender: FDA-Public Use
  Company Number: CA-ASTELLAS-2017US044511

PATIENT
  Age: 88 Year
  Sex: Male

DRUGS (7)
  1. MYRBETRIQ [Suspect]
     Active Substance: MIRABEGRON
     Indication: POLLAKIURIA
     Route: 065
     Dates: start: 20161111
  2. VITAMIN D3 [Interacting]
     Active Substance: CHOLECALCIFEROL
     Indication: PRODUCT USED FOR UNKNOWN INDICATION
     Dosage: UNK UNK, THRICE DAILY
     Route: 065
  3. CALCIUM [Interacting]
     Active Substance: CALCIUM
     Indication: PRODUCT USED FOR UNKNOWN INDICATION
     Dosage: UNK UNK, TWICE DAILY
     Route: 065
  4. OMEGA 3 6 9                        /06597401/ [Interacting]
     Active Substance: OMEGA-3 FATTY ACIDS
     Indication: PRODUCT USED FOR UNKNOWN INDICATION
     Dosage: UNK, UNKNOWN FREQ.
     Route: 065
  5. MYRBETRIQ [Interacting]
     Active Substance: MIRABEGRON
     Indication: POLLAKIURIA
     Route: 065
     Dates: start: 2017
  6. MYRBETRIQ [Interacting]
     Active Substance: MIRABEGRON
     Dosage: 2X25 MG, ONCE DAILY
     Route: 065
  7. CENTRUM                            /02267801/ [Interacting]
     Active Substance: MINERALS\VITAMINS
     Indication: PRODUCT USED FOR UNKNOWN INDICATION
     Dosage: UNK UNK, ONCE DAILY
     Route: 065

REACTIONS (8)
  - Nocturia [Unknown]
  - Drug interaction [Unknown]
  - Drug ineffective [Not Recovered/Not Resolved]
  - Movement disorder [Unknown]
  - Hypoacusis [Unknown]
  - Vision blurred [Unknown]
  - Fall [Unknown]
  - Bedridden [Unknown]
